FAERS Safety Report 5217524-X (Version None)
Quarter: 2007Q1

REPORT INFORMATION
  Report Type: 
  Country: None (occurrence: None)
  Receive Date: 20070124
  Receipt Date: 20070114
  Transmission Date: 20070707
  Serious: Yes (Hospitalization)
  Sender: FDA-Public Use
  Company Number: IL-NOVOPROD-260125

PATIENT
  Sex: Female

DRUGS (1)
  1. ESTROFEM [Suspect]
     Indication: INFERTILITY
     Dosage: 6 MG, QD

REACTIONS (1)
  - CEREBROVASCULAR ACCIDENT [None]
